FAERS Safety Report 6200746-9 (Version None)
Quarter: 2009Q2

REPORT INFORMATION
  Report Type: 
  Country: None (occurrence: None)
  Receive Date: 20090522
  Receipt Date: 20080717
  Transmission Date: 20091009
  Serious: No
  Sender: FDA-Public Use
  Company Number: US-ALEXION-A200800178

PATIENT
  Sex: Female
  Weight: 90.703 kg

DRUGS (1)
  1. SOLIRIS [Suspect]
     Indication: HAEMOGLOBINURIA
     Dosage: 900 MG, EVERY OTHER WEEK
     Route: 042
     Dates: start: 20080606

REACTIONS (1)
  - INFUSION SITE EXTRAVASATION [None]
